FAERS Safety Report 10157809 (Version 2)
Quarter: 2014Q2

REPORT INFORMATION
  Report Type: Report from Study
  Country: US (occurrence: US)
  Receive Date: 20140507
  Receipt Date: 20140520
  Transmission Date: 20141212
  Serious: Yes (Hospitalization, Other)
  Sender: FDA-Public Use
  Company Number: US-ABBVIE-14P-163-1232987-00

PATIENT
  Age: 28 Year
  Sex: Female
  Weight: 57.2 kg

DRUGS (3)
  1. HUMIRA [Suspect]
     Indication: CROHN^S DISEASE
     Dates: start: 200912, end: 201305
  2. HUMIRA [Suspect]
     Dates: start: 201404
  3. BIRTH CONTROL PILLS [Concomitant]
     Indication: PRODUCT USED FOR UNKNOWN INDICATION

REACTIONS (8)
  - Gastrointestinal disorder [Recovering/Resolving]
  - Colectomy [Unknown]
  - Intestinal anastomosis [Unknown]
  - Colostomy closure [Unknown]
  - Abdominal pain [Unknown]
  - Weight decreased [Unknown]
  - Crohn^s disease [Recovering/Resolving]
  - Ileal perforation [Recovering/Resolving]
